FAERS Safety Report 9730810 (Version 1)
Quarter: 2013Q4

REPORT INFORMATION
  Report Type: Report from Study
  Country: US (occurrence: US)
  Receive Date: 20131205
  Receipt Date: 20131205
  Transmission Date: 20140711
  Serious: Yes (Hospitalization)
  Sender: FDA-Public Use
  Company Number: US-ROCHE-1309443

PATIENT
  Sex: Female
  Weight: 79 kg

DRUGS (27)
  1. AVASTIN [Suspect]
     Indication: BREAST CANCER
     Route: 065
     Dates: start: 20130207
  2. AVASTIN [Suspect]
     Indication: BONE CANCER
  3. XELODA [Suspect]
     Indication: BONE CANCER
     Dosage: TAKEN WITH MEALS
     Route: 048
  4. XELODA [Suspect]
     Indication: BREAST CANCER
  5. CARBOPLATIN [Concomitant]
  6. GEMCITABINE [Concomitant]
  7. FENTANYL [Concomitant]
     Indication: PAIN
     Route: 062
  8. MORPHINE [Concomitant]
     Indication: PAIN
     Route: 048
  9. XANAX [Concomitant]
     Dosage: NIGHTLY PRN
     Route: 048
  10. DECADRON [Concomitant]
     Dosage: TAKEN WITH MEALS
     Route: 048
  11. GABAPENTIN [Concomitant]
     Route: 065
  12. LEVAQUIN [Concomitant]
     Route: 048
  13. COLACE [Concomitant]
     Dosage: PRN
     Route: 048
  14. FEMARA [Concomitant]
     Route: 048
  15. MOBIC [Concomitant]
     Route: 048
  16. PRILOSEC [Concomitant]
     Route: 048
  17. ZOFRAN ODT [Concomitant]
     Indication: NAUSEA
     Dosage: PRN
     Route: 048
  18. PERCOCET [Concomitant]
     Dosage: PRN
     Route: 065
  19. KLOR-CON [Concomitant]
     Route: 048
  20. COMPAZINE [Concomitant]
     Dosage: PRN
     Route: 048
  21. IXEMPRA [Concomitant]
     Indication: BREAST CANCER
  22. ADVIL [Concomitant]
     Dosage: 100 MG  PRN
     Route: 048
  23. TYLENOL [Concomitant]
     Dosage: 325 MG PRN
     Route: 048
  24. ROXICODONE [Concomitant]
     Route: 048
  25. CIPRO [Concomitant]
     Route: 048
  26. CIPRO [Concomitant]
     Route: 048
  27. LORAZEPAM [Concomitant]
     Indication: ANXIETY
     Dosage: PRN
     Route: 048

REACTIONS (9)
  - Musculoskeletal pain [Recovering/Resolving]
  - Tachycardia [Recovering/Resolving]
  - Dyspnoea [Recovering/Resolving]
  - Weight decreased [Unknown]
  - Oedema peripheral [Unknown]
  - Anxiety [Unknown]
  - Drug intolerance [Unknown]
  - Disease progression [Unknown]
  - Pneumonia [Unknown]
